FAERS Safety Report 9876881 (Version 2)
Quarter: 2014Q1

REPORT INFORMATION
  Report Type: Spontaneous
  Country: DE (occurrence: None)
  Receive Date: 20140204
  Receipt Date: 20140205
  Transmission Date: 20141002
  Serious: Yes (Other)
  Sender: FDA-Public Use
  Company Number: 1402-0248

PATIENT
  Age: 69 Year
  Sex: Female

DRUGS (3)
  1. VEGF TRAP-EYE (INJECTION) (VEGF TRAP) [Suspect]
     Indication: AGE-RELATED MACULAR DEGENERATION
     Dosage: 2MG, 1 IN 1M, INTRAOCULAR
     Route: 031
     Dates: start: 20131128
  2. TROPICAMIDE (TROPICAMIDE) [Suspect]
     Dosage: 2 MG, 1 IN 1 M, INTRAOCULAR
  3. PREDNISOLON (PREDNISOLONE) [Concomitant]

REACTIONS (2)
  - Angle closure glaucoma [None]
  - Visual acuity reduced [None]
